FAERS Safety Report 19385425 (Version 4)
Quarter: 2021Q3

REPORT INFORMATION
  Report Type: Report from Study
  Country: US (occurrence: US)
  Receive Date: 20210607
  Receipt Date: 20210928
  Transmission Date: 20211014
  Serious: Yes (Other)
  Sender: FDA-Public Use
  Company Number: US-SHIRE-US202025784

PATIENT
  Age: 63 Year
  Sex: Female

DRUGS (1)
  1. CUVITRU [Suspect]
     Active Substance: HUMAN IMMUNOGLOBULIN G
     Indication: PRIMARY IMMUNODEFICIENCY SYNDROME
     Dosage: 10 GRAM, 1X/WEEK
     Route: 065

REACTIONS (28)
  - Asthma [Not Recovered/Not Resolved]
  - Chest pain [Unknown]
  - Impaired gastric emptying [Not Recovered/Not Resolved]
  - COVID-19 [Unknown]
  - Blood pressure decreased [Unknown]
  - Swelling [Not Recovered/Not Resolved]
  - Inappropriate schedule of product administration [Unknown]
  - Glaucoma [Unknown]
  - Meniere^s disease [Unknown]
  - Back pain [Unknown]
  - Arthralgia [Unknown]
  - Infusion site extravasation [Unknown]
  - Cough [Unknown]
  - Discomfort [Unknown]
  - Dizziness [Unknown]
  - Gastrooesophageal reflux disease [Not Recovered/Not Resolved]
  - Memory impairment [Unknown]
  - Headache [Unknown]
  - Malaise [Unknown]
  - Pain [Unknown]
  - Fall [Unknown]
  - Confusional state [Unknown]
  - Spinal fracture [Unknown]
  - Infusion site pruritus [Unknown]
  - Condition aggravated [Unknown]
  - Bronchiectasis [Unknown]
  - Dyspnoea [Unknown]
  - Inability to afford medication [Unknown]

NARRATIVE: CASE EVENT DATE: 20200807
